FAERS Safety Report 7338985-6 (Version None)
Quarter: 2011Q1

REPORT INFORMATION
  Report Type: 
  Country: None (occurrence: None)
  Receive Date: 20110308
  Receipt Date: 20110301
  Transmission Date: 20110831
  Serious: Yes (Other)
  Sender: FDA-Public Use
  Company Number: US-AMGEN-USASP2011011002

PATIENT
  Age: 80 Year
  Sex: Female

DRUGS (5)
  1. CORTICOSTEROIDS [Concomitant]
  2. NPLATE [Suspect]
     Indication: THROMBOCYTOPENIA
     Dosage: 10 A?G/KG, UNK
     Dates: start: 20100318, end: 20100826
  3. IMMUNOGLOBULINS [Concomitant]
  4. NPLATE [Suspect]
     Dates: start: 20100318, end: 20100826
  5. METHOTREXATE [Concomitant]

REACTIONS (4)
  - MYELODYSPLASTIC SYNDROME [None]
  - PLATELET COUNT DECREASED [None]
  - THERAPEUTIC RESPONSE DECREASED [None]
  - DRUG INEFFECTIVE [None]
